FAERS Safety Report 11227148 (Version 1)
Quarter: 2015Q2

REPORT INFORMATION
  Report Type: Spontaneous
  Country: None (occurrence: None)
  Receive Date: 20150626
  Receipt Date: 20150626
  Transmission Date: 20150821
  Serious: Yes (Other)
  Sender: FDA-Public Use
  Company Number: None

PATIENT
  Age: 34 Year
  Sex: Male
  Weight: 122.02 kg

DRUGS (11)
  1. DILAUDID [Concomitant]
     Active Substance: HYDROMORPHONE HYDROCHLORIDE
  2. VANCOMYCIN [Suspect]
     Active Substance: VANCOMYCIN
     Indication: ABDOMINAL ABSCESS
     Dosage: 1.25 G, TID, INTRAVENOUS
     Route: 042
     Dates: start: 20141026, end: 20141028
  3. ERTAPENEM [Concomitant]
     Active Substance: ERTAPENEM
  4. IV FLUIDS [Concomitant]
     Active Substance: UNSPECIFIED INGREDIENT
  5. ZOSYN [Concomitant]
     Active Substance: PIPERACILLIN SODIUM\TAZOBACTAM SODIUM
  6. IV ACETAMINOPHEN [Concomitant]
  7. REGLAN [Concomitant]
     Active Substance: METOCLOPRAMIDE HYDROCHLORIDE
  8. DIAZEPAM. [Concomitant]
     Active Substance: DIAZEPAM
  9. KETOROLAC [Suspect]
     Active Substance: KETOROLAC\KETOROLAC TROMETHAMINE
     Indication: PAIN
     Dosage: 30 MG, QID, INTRAVENOUS
     Route: 042
     Dates: start: 20141020, end: 20141028
  10. HEPARIN [Concomitant]
     Active Substance: HEPARIN SODIUM
  11. PERCOCET [Concomitant]
     Active Substance: ACETAMINOPHEN\OXYCODONE HYDROCHLORIDE

REACTIONS (2)
  - Blood creatinine increased [None]
  - Nephropathy toxic [None]

NARRATIVE: CASE EVENT DATE: 20141028
